FAERS Safety Report 9704148 (Version 1)
Quarter: 2013Q4

REPORT INFORMATION
  Report Type: Spontaneous
  Country: US (occurrence: US)
  Receive Date: 20131122
  Receipt Date: 20131122
  Transmission Date: 20140711
  Serious: No
  Sender: FDA-Public Use
  Company Number: US-GLAXOSMITHKLINE-A1027260A

PATIENT
  Age: 66 Year
  Sex: Female

DRUGS (7)
  1. BUPROPION HYDROCHLORIDE [Suspect]
     Indication: DEPRESSION
     Dosage: 150MG PER DAY
     Route: 048
     Dates: start: 20130521
  2. LEVOTHYROXINE [Concomitant]
  3. CYMBALTA [Concomitant]
  4. KLONOPIN [Concomitant]
  5. VITAMIN D [Concomitant]
  6. RED YEAST RICE [Concomitant]
  7. BABY ASPIRIN [Concomitant]

REACTIONS (3)
  - Drug dispensing error [Recovered/Resolved]
  - Wrong technique in drug usage process [Unknown]
  - Accidental overdose [Unknown]
